FAERS Safety Report 22365700 (Version 1)
Quarter: 2023Q2

REPORT INFORMATION
  Report Type: Spontaneous
  Country: US (occurrence: US)
  Receive Date: 20230525
  Receipt Date: 20230525
  Transmission Date: 20230722
  Serious: Yes (Hospitalization, Other)
  Sender: FDA-Public Use
  Company Number: US-APOTEX-2023AP008387

PATIENT
  Age: 33 Year
  Sex: Male

DRUGS (1)
  1. ZOLPIDEM [Suspect]
     Active Substance: ZOLPIDEM TARTRATE
     Indication: Substance use
     Dosage: 60 MILLIGRAM
     Route: 042

REACTIONS (8)
  - Substance use disorder [Unknown]
  - Bacteraemia [Recovering/Resolving]
  - Ischaemia [Recovering/Resolving]
  - Arterial occlusive disease [Recovering/Resolving]
  - Injection site pain [Recovering/Resolving]
  - Injection site swelling [Recovering/Resolving]
  - Pain in extremity [Recovering/Resolving]
  - Paraesthesia [Recovering/Resolving]
